FAERS Safety Report 7379771-0 (Version None)
Quarter: 2011Q1

REPORT INFORMATION
  Report Type: 
  Country: None (occurrence: None)
  Receive Date: 20110329
  Receipt Date: 20110321
  Transmission Date: 20110831
  Serious: Yes (Other)
  Sender: FDA-Public Use
  Company Number: US-ASTELLAS-2011US001178

PATIENT
  Sex: Male
  Weight: 67 kg

DRUGS (7)
  1. PREDNISONE [Concomitant]
     Indication: RENAL TRANSPLANT
     Dosage: 10 MG, UID/QD
     Route: 048
     Dates: start: 20091003, end: 20100628
  2. TACROLIMUS [Suspect]
     Indication: RENAL TRANSPLANT
     Dosage: 3 MG, BID
     Route: 065
     Dates: start: 20090319, end: 20091110
  3. MYCOPHENOLATE MOFETIL [Concomitant]
     Indication: RENAL TRANSPLANT
     Dosage: 720 MG, BID
     Route: 048
     Dates: start: 20091111, end: 20100915
  4. TACROLIMUS [Suspect]
     Dosage: 2 MG, UID/QD
     Route: 065
     Dates: start: 20091111
  5. PREDNISONE [Concomitant]
     Dosage: 7.5 MG, UID/QD
     Route: 048
     Dates: start: 20100629, end: 20100915
  6. PREDNISONE [Concomitant]
     Dosage: 5 MG, UID/QD
     Route: 048
     Dates: start: 20100916
  7. MYCOPHENOLATE MOFETIL [Concomitant]
     Dosage: 1080 MG, UID/QD
     Route: 048
     Dates: start: 20100916

REACTIONS (4)
  - DRUG INEFFECTIVE [None]
  - KIDNEY TRANSPLANT REJECTION [None]
  - RENAL TUBULAR ATROPHY [None]
  - KIDNEY FIBROSIS [None]
